FAERS Safety Report 8866283 (Version 2)
Quarter: 2012Q4

REPORT INFORMATION
  Report Type: Report from Study
  Country: US (occurrence: US)
  Receive Date: 20121025
  Receipt Date: 20121031
  Transmission Date: 20130627
  Serious: Yes (Hospitalization, Other)
  Sender: FDA-Public Use
  Company Number: US-US-EMD SERONO, INC.-7168330

PATIENT
  Sex: Female
  Weight: 53.57 kg

DRUGS (4)
  1. REBIF [Suspect]
     Indication: MULTIPLE SCLEROSIS
     Route: 058
     Dates: start: 20080418
  2. VITAMIN D [Concomitant]
     Indication: ROUTINE HEALTH MAINTENANCE
  3. CALCIUM [Concomitant]
     Indication: ROUTINE HEALTH MAINTENANCE
  4. PAXIL [Concomitant]
     Indication: EMOTIONAL DISORDER

REACTIONS (6)
  - Vascular occlusion [Recovered/Resolved]
  - Deep vein thrombosis [Recovered/Resolved]
  - Convulsion [Recovered/Resolved]
  - Fall [Recovered/Resolved]
  - Head injury [Recovered/Resolved]
  - Injection site erythema [Unknown]
